FAERS Safety Report 8849979 (Version 1)
Quarter: 2012Q4

REPORT INFORMATION
  Report Type: 
  Country: US (occurrence: US)
  Receive Date: 20121019
  Receipt Date: 20121019
  Transmission Date: 20130627
  Serious: No
  Sender: FDA-Public Use
  Company Number: US-B.I. PHARMACEUTICALS,INC./RIDGEFIELD-2012-BP-25913BP

PATIENT
  Sex: Female

DRUGS (9)
  1. PRADAXA [Suspect]
     Indication: ATRIAL FIBRILLATION
     Dosage: 300 mg
     Route: 048
  2. METOPROLOL [Concomitant]
     Indication: HYPERTENSION
     Dosage: 50 mg
     Route: 048
  3. METOPROLOL [Concomitant]
     Indication: ATRIAL FIBRILLATION
  4. ALDACTONE [Concomitant]
     Indication: HYPERTENSION
     Dosage: 25 mg
     Route: 048
  5. ALDACTONE [Concomitant]
     Indication: CHRONIC OBSTRUCTIVE PULMONARY DISEASE
  6. AMLODIPINE [Concomitant]
     Indication: ATRIAL FIBRILLATION
     Dosage: 10 mg
     Route: 048
  7. NEURONTIN [Concomitant]
     Dosage: 600 mg
     Route: 048
  8. LORAZEPAM [Concomitant]
     Indication: PANIC ATTACK
     Route: 048
  9. HYDROCODONE [Concomitant]
     Indication: PAIN
     Route: 048

REACTIONS (2)
  - Wrong technique in drug usage process [Recovered/Resolved]
  - Dysphagia [Not Recovered/Not Resolved]
